FAERS Safety Report 10256477 (Version 1)
Quarter: 2014Q2

REPORT INFORMATION
  Report Type: Report from Study
  Country: DE (occurrence: DE)
  Receive Date: 20140624
  Receipt Date: 20140624
  Transmission Date: 20141212
  Serious: Yes (Hospitalization)
  Sender: FDA-Public Use
  Company Number: DE-JNJFOC-20130300828

PATIENT
  Age: 65 Year
  Sex: Male
  Weight: 104 kg

DRUGS (6)
  1. RIVAROXABAN [Suspect]
     Indication: PRODUCT USED FOR UNKNOWN INDICATION
     Route: 065
     Dates: start: 20130124, end: 20130131
  2. ASS [Concomitant]
  3. ELIQUIS [Concomitant]
     Dates: start: 20130131
  4. CORDAREX [Concomitant]
     Dates: start: 20130204
  5. OXAZEPAM [Concomitant]
     Dates: start: 20130204
  6. PANTOZOL [Concomitant]
     Dates: start: 20100101

REACTIONS (2)
  - Renal failure acute [Recovered/Resolved]
  - Atrial fibrillation [Recovered/Resolved]
